FAERS Safety Report 7902154-9 (Version None)
Quarter: 2011Q4

REPORT INFORMATION
  Report Type: 
  Country: None (occurrence: None)
  Receive Date: 20111108
  Receipt Date: 20111103
  Transmission Date: 20120403
  Serious: Yes (Hospitalization)
  Sender: FDA-Public Use
  Company Number: US-BAYER-2011-062429

PATIENT
  Sex: Male
  Weight: 77.098 kg

DRUGS (15)
  1. PLATELETS [Concomitant]
     Indication: BLOOD COUNT ABNORMAL
     Dosage: WEEKLY
  2. VALTREX [Concomitant]
     Dosage: 1 TABLET
  3. VFEND [Concomitant]
     Dosage: 2 TABLETS
  4. HYDROCORTISONE [Concomitant]
     Dosage: 10 MG, BID
  5. CIPROFLOXACIN [Concomitant]
     Dosage: 500 MG, BID
  6. NEXAVAR [Suspect]
     Indication: ACUTE MYELOID LEUKAEMIA
     Dosage: 400 MG, BID
     Route: 048
     Dates: start: 20110620, end: 20110701
  7. NEXAVAR [Suspect]
     Dosage: 200 MG, BID
     Route: 048
     Dates: start: 20110701, end: 20110701
  8. DESOWEN [Concomitant]
     Dosage: 1 APPLICATION
  9. PREDNISONE [Concomitant]
     Dosage: 10 MG, BID
  10. DAPSONE [Concomitant]
     Dosage: 1 TABLET
  11. NEXAVAR [Suspect]
     Dosage: 200 MG, QD
     Route: 048
     Dates: start: 20110701
  12. PROGRAF [Concomitant]
     Dosage: 1 CAPSULE
  13. NEXIUM [Concomitant]
     Dosage: 1 CAPSULE
  14. CIPROFLOXACIN HCL [Concomitant]
     Dosage: UNK
     Dates: start: 20110814
  15. CLOBETASOL [Concomitant]
     Dosage: 1 APPLICATION

REACTIONS (8)
  - FATIGUE [None]
  - BONE PAIN [None]
  - ASTHENIA [None]
  - BLOOD COUNT ABNORMAL [None]
  - BALANCE DISORDER [None]
  - SEPSIS [None]
  - NAUSEA [None]
  - NEUROPATHY PERIPHERAL [None]
